FAERS Safety Report 4532003-0 (Version None)
Quarter: 2004Q4

REPORT INFORMATION
  Report Type: 
  Country: None (occurrence: None)
  Receive Date: 20041217
  Receipt Date: 20041214
  Transmission Date: 20050328
  Serious: Yes (Other)
  Sender: FDA-Public Use
  Company Number: FRWYE271409DEC04

PATIENT
  Age: 42 Year
  Sex: Male

DRUGS (2)
  1. RAPAMUNE [Suspect]
     Indication: PROPHYLAXIS AGAINST TRANSPLANT REJECTION
     Dosage: ORAL
     Route: 048
     Dates: start: 20011001
  2. CELLCEPT [Concomitant]

REACTIONS (2)
  - DEEP VEIN THROMBOSIS [None]
  - NEPHROTIC SYNDROME [None]
